FAERS Safety Report 20999363 (Version 1)
Quarter: 2022Q2

REPORT INFORMATION
  Report Type: Spontaneous
  Country: US (occurrence: US)
  Receive Date: 20220623
  Receipt Date: 20220623
  Transmission Date: 20220721
  Serious: Yes (Other)
  Sender: FDA-Public Use
  Company Number: US-TEVA-2022-US-2047563

PATIENT
  Age: 4 Year
  Sex: Male

DRUGS (6)
  1. BUSULFAN [Suspect]
     Active Substance: BUSULFAN
     Indication: Bone marrow conditioning regimen
     Dosage: 4 MG/KG DAILY; FOR 12 DOSES ON DAYS -8 TO -6
     Route: 042
  2. FLUDARABINE [Suspect]
     Active Substance: FLUDARABINE PHOSPHATE
     Indication: Bone marrow conditioning regimen
     Dosage: ON DAYS -5 TO -2
     Route: 042
  3. MELPHALAN [Suspect]
     Active Substance: MELPHALAN
     Indication: Bone marrow conditioning regimen
     Dosage: ON DAY -2
     Route: 042
  4. THYMOCYTE IMMUNE GLOBULIN NOS [Suspect]
     Active Substance: THYMOCYTE IMMUNE GLOBULIN NOS
     Indication: Bone marrow conditioning regimen
     Dosage: OVER DAYS -9 TO -7
     Route: 042
  5. IMMUNE-GLOBULIN [Concomitant]
     Indication: Thrombocytopenia
     Route: 041
  6. PENTAMIDINE [Concomitant]
     Active Substance: PENTAMIDINE
     Indication: Antifungal prophylaxis
     Route: 042

REACTIONS (3)
  - Stenotrophomonas infection [Unknown]
  - Stenotrophomonas bacteraemia [Unknown]
  - Mucosal inflammation [Unknown]
